FAERS Safety Report 10532771 (Version 1)
Quarter: 2014Q4

REPORT INFORMATION
  Report Type: Spontaneous
  Country: US (occurrence: US)
  Receive Date: 20141022
  Receipt Date: 20141022
  Transmission Date: 20150529
  Serious: Yes (Other)
  Sender: FDA-Public Use
  Company Number: US-RANBAXY-2014US-86844

PATIENT
  Sex: Male

DRUGS (1)
  1. ATORVASTATIN [Suspect]
     Active Substance: ATORVASTATIN
     Indication: BLOOD CHOLESTEROL INCREASED
     Dosage: UNK
     Route: 048

REACTIONS (7)
  - Emotional disorder [Unknown]
  - Nephrolithiasis [Unknown]
  - Haematuria [Unknown]
  - Pain [Unknown]
  - Economic problem [Unknown]
  - Urinary tract injury [Unknown]
  - Product contamination physical [Unknown]
